FAERS Safety Report 14645987 (Version 1)
Quarter: 2018Q1

REPORT INFORMATION
  Report Type: Spontaneous
  Country: US (occurrence: US)
  Receive Date: 20180316
  Receipt Date: 20180316
  Transmission Date: 20180509
  Serious: No
  Sender: FDA-Public Use
  Company Number: US-009507513-1803USA005593

PATIENT
  Sex: Female

DRUGS (4)
  1. DULERA [Suspect]
     Active Substance: FORMOTEROL FUMARATE DIHYDRATE\MOMETASONE FUROATE
     Indication: CHRONIC OBSTRUCTIVE PULMONARY DISEASE
     Dosage: 100 MG 1 PUFF PER DAY
     Route: 048
     Dates: start: 201609
  2. PROAIR HFA [Concomitant]
     Active Substance: ALBUTEROL SULFATE
  3. SPIRIVA [Concomitant]
     Active Substance: TIOTROPIUM BROMIDE MONOHYDRATE
  4. DULERA [Suspect]
     Active Substance: FORMOTEROL FUMARATE DIHYDRATE\MOMETASONE FUROATE
     Dosage: 200MG, 2 PUFFS PER DAY
     Route: 048

REACTIONS (3)
  - Dyspnoea [Recovered/Resolved]
  - Drug dose omission [Unknown]
  - Product quality issue [Unknown]
